FAERS Safety Report 6784920-9 (Version None)
Quarter: 2010Q2

REPORT INFORMATION
  Report Type: 
  Country: None (occurrence: None)
  Receive Date: 20100618
  Receipt Date: 20100604
  Transmission Date: 20101027
  Serious: Yes (Other)
  Sender: FDA-Public Use
  Company Number: 2010-1973

PATIENT
  Age: 13 Year
  Sex: Male
  Weight: 38.2 kg

DRUGS (1)
  1. INCRELEX [Suspect]
     Indication: GROWTH HORMONE DEFICIENCY
     Dosage: 92 UNITS (46 UNITS, 2 IN 1 D, SUBCUTANEOUS
     Route: 058
     Dates: start: 20091125, end: 20091225

REACTIONS (3)
  - CHEST PAIN [None]
  - DECREASED ACTIVITY [None]
  - VENTRICULAR HYPERTROPHY [None]
